FAERS Safety Report 7161210-6 (Version None)
Quarter: 2010Q4

REPORT INFORMATION
  Report Type: 
  Country: None (occurrence: None)
  Receive Date: 20101215
  Receipt Date: 20101208
  Transmission Date: 20110411
  Serious: No
  Sender: FDA-Public Use
  Company Number: US-BIOGENIDEC-2010BI043257

PATIENT
  Sex: Female

DRUGS (2)
  1. TYSABRI [Suspect]
     Indication: MULTIPLE SCLEROSIS
     Route: 042
     Dates: start: 20080403
  2. TYSABRI [Suspect]
     Route: 042
     Dates: start: 20050101, end: 20050228

REACTIONS (3)
  - HYPERSENSITIVITY [None]
  - MEMORY IMPAIRMENT [None]
  - VISUAL IMPAIRMENT [None]
